FAERS Safety Report 20133002 (Version 5)
Quarter: 2022Q1

REPORT INFORMATION
  Report Type: Report from Study
  Country: US (occurrence: US)
  Receive Date: 20211201
  Receipt Date: 20220310
  Transmission Date: 20220423
  Serious: No
  Sender: FDA-Public Use
  Company Number: US-NOVARTISTESTPH-NVSC2021US273399

PATIENT
  Sex: Male

DRUGS (1)
  1. ENTRESTO [Suspect]
     Active Substance: SACUBITRIL\VALSARTAN
     Indication: Cardiac failure chronic
     Dosage: UNK
     Route: 065
     Dates: start: 20211121

REACTIONS (9)
  - Dyspnoea [Not Recovered/Not Resolved]
  - Weight fluctuation [Unknown]
  - Blood pressure fluctuation [Recovering/Resolving]
  - Nasal congestion [Recovering/Resolving]
  - Constipation [Recovering/Resolving]
  - Sinus disorder [Recovering/Resolving]
  - Weight increased [Unknown]
  - Weight decreased [Recovering/Resolving]
  - Headache [Recovering/Resolving]
